FAERS Safety Report 6044415-7 (Version None)
Quarter: 2009Q1

REPORT INFORMATION
  Report Type: 
  Country: None (occurrence: None)
  Receive Date: 20090115
  Receipt Date: 20090115
  Transmission Date: 20090719
  Serious: No
  Sender: FDA-Public Use
  Company Number: None

PATIENT
  Sex: Female
  Weight: 59.2 kg

DRUGS (3)
  1. CYCLOPHOSPHAMIDE [Suspect]
     Dosage: 519 MG
  2. PENTOSTATIN [Suspect]
     Dosage: 1.73 MG
  3. RITUXIMAB (MOABC2B8 ANTI CD2O, CHIMERIC) [Suspect]
     Dosage: 649 MG

REACTIONS (1)
  - ANAEMIA [None]
